FAERS Safety Report 5875047-9 (Version None)
Quarter: 2008Q3

REPORT INFORMATION
  Report Type: 
  Country: None (occurrence: None)
  Receive Date: 20080904
  Receipt Date: 20080826
  Transmission Date: 20090109
  Serious: Yes (Hospitalization)
  Sender: FDA-Public Use
  Company Number: 2008AL006678

PATIENT
  Age: 85 Year
  Sex: Female
  Weight: 47.6277 kg

DRUGS (13)
  1. DIGOXIN [Suspect]
     Dosage: 0.125MG, DAILY, PO
     Route: 048
     Dates: start: 20080126
  2. RYTHMOL [Suspect]
     Dosage: 150MG, BID, PO
     Route: 048
     Dates: start: 20080124, end: 20080128
  3. RYTHMOL [Concomitant]
  4. DILTIAZEM HCL [Concomitant]
  5. ADVAIR DISKUS 100/50 [Concomitant]
  6. METOPROLOL SUCCINATE [Concomitant]
  7. PROTONIX [Concomitant]
  8. POTASSIUM CHLORIDE [Concomitant]
  9. PRAVASTATIN [Concomitant]
  10. PREDNISONE TAPER [Concomitant]
  11. DIOVAN [Concomitant]
  12. PROVENTIL GENTLEHALER [Concomitant]
  13. COUMADIN [Concomitant]

REACTIONS (11)
  - BLOOD POTASSIUM DECREASED [None]
  - BLOOD UREA INCREASED [None]
  - CONFUSIONAL STATE [None]
  - ELECTROCARDIOGRAM ABNORMAL [None]
  - ELECTROCARDIOGRAM QT PROLONGED [None]
  - ELECTROCARDIOGRAM ST-T CHANGE [None]
  - EMPHYSEMA [None]
  - HALLUCINATION [None]
  - MENINGIOMA [None]
  - OBSTRUCTIVE AIRWAYS DISORDER [None]
  - WHITE BLOOD CELL COUNT INCREASED [None]
